FAERS Safety Report 8469852-2 (Version None)
Quarter: 2012Q2

REPORT INFORMATION
  Report Type: 
  Country: None (occurrence: None)
  Receive Date: 20120627
  Receipt Date: 20120622
  Transmission Date: 20120825
  Serious: Yes (Life-Threatening)
  Sender: FDA-Public Use
  Company Number: PHHY2012GB053721

PATIENT
  Age: 62 Year
  Sex: Male

DRUGS (11)
  1. ATORVASTATIN [Concomitant]
     Dosage: 80 MG, UNK
     Route: 048
  2. PIPERACILLIN/TAZOBACTAM [Suspect]
     Indication: CHOLECYSTITIS
     Dosage: 4.5 G, UNK
     Route: 042
     Dates: start: 20120526, end: 20120526
  3. ASPIRIN [Concomitant]
     Dosage: 75 MG, UNK
     Route: 048
  4. CODEINE PHOSPHATE [Concomitant]
     Route: 048
     Dates: start: 20120523
  5. DALTEPARIN SODIUM [Concomitant]
     Indication: THROMBOSIS PROPHYLAXIS
     Dosage: 5000 IU, UNK
     Route: 058
     Dates: start: 20120522
  6. PRASUGREL [Concomitant]
     Dosage: 5 MG, UNK
     Route: 048
  7. OMEPRAZOLE [Concomitant]
     Dosage: 20 MG, UNK
     Route: 048
  8. BISOPROLOL FUMARATE [Concomitant]
     Dosage: 2.5 MG, UNK
     Route: 048
  9. AMOXICILLIN AND CLAVULANATE POTASSIUM [Concomitant]
     Dosage: 1.2 G, UNK
     Route: 042
     Dates: start: 20120522
  10. ACETAMINOPHEN [Concomitant]
     Dosage: 1 G, UNK
     Route: 048
     Dates: start: 20120523
  11. RAMIPRIL [Concomitant]
     Dosage: 2.5 MG, UNK
     Route: 048

REACTIONS (7)
  - LIP SWELLING [None]
  - SWOLLEN TONGUE [None]
  - HYPERTENSION [None]
  - MYOCARDIAL STRAIN [None]
  - PARAESTHESIA [None]
  - ELECTROCARDIOGRAM ST SEGMENT DEPRESSION [None]
  - HYPOTENSION [None]
